FAERS Safety Report 13934113 (Version 3)
Quarter: 2017Q4

REPORT INFORMATION
  Report Type: Report from Study
  Country: JP (occurrence: JP)
  Receive Date: 20170904
  Receipt Date: 20171128
  Transmission Date: 20180320
  Serious: Yes (Death, Hospitalization)
  Sender: FDA-Public Use
  Company Number: PHHY2012JP139358

PATIENT
  Age: 70 Year
  Sex: Male
  Weight: 57 kg

DRUGS (12)
  1. CYTARABINE. [Concomitant]
     Active Substance: CYTARABINE
     Dosage: UNK
     Route: 029
     Dates: start: 20101207, end: 20101207
  2. METHOTREXATE. [Concomitant]
     Active Substance: METHOTREXATE
     Indication: NEOPLASM MALIGNANT
     Route: 029
     Dates: start: 20101207, end: 20101207
  3. BAKTAR [Concomitant]
     Active Substance: SULFAMETHOXAZOLE\TRIMETHOPRIM
     Indication: PROPHYLAXIS
     Route: 048
     Dates: start: 20110214, end: 20110620
  4. PARIET [Concomitant]
     Active Substance: RABEPRAZOLE SODIUM
     Indication: PROPHYLAXIS AGAINST GASTROINTESTINAL ULCER
     Route: 048
     Dates: start: 20110214, end: 20110620
  5. CYTARABINE. [Concomitant]
     Active Substance: CYTARABINE
     Indication: NEOPLASM MALIGNANT
     Dosage: UNK
     Route: 051
     Dates: start: 20101207, end: 20101208
  6. PREDONINE [Concomitant]
     Active Substance: PREDNISOLONE
     Indication: NEOPLASM MALIGNANT
     Route: 029
     Dates: start: 20101207, end: 20101207
  7. MAGMITT [Concomitant]
     Active Substance: MAGNESIUM OXIDE
     Indication: CONSTIPATION PROPHYLAXIS
     Route: 048
     Dates: start: 20110214, end: 20110620
  8. MUCOSTA [Concomitant]
     Active Substance: REBAMIPIDE
     Indication: PROPHYLAXIS AGAINST GASTROINTESTINAL ULCER
     Route: 048
     Dates: start: 20110214, end: 20110620
  9. MYCOSYST [Concomitant]
     Active Substance: FLUCONAZOLE
     Indication: PROPHYLAXIS
     Route: 048
     Dates: start: 20110214, end: 20110620
  10. VALTREX [Concomitant]
     Active Substance: VALACYCLOVIR HYDROCHLORIDE
     Indication: PROPHYLAXIS
     Route: 048
     Dates: start: 20110214, end: 20110620
  11. ARRANON [Suspect]
     Active Substance: NELARABINE
     Indication: PRECURSOR T-LYMPHOBLASTIC LYMPHOMA/LEUKAEMIA
     Dosage: 950 MG/M2, QOD
     Route: 041
     Dates: start: 20110214, end: 20110218
  12. ARRANON [Suspect]
     Active Substance: NELARABINE
     Dosage: 1100 MG/M2, QOD
     Route: 041
     Dates: start: 20110307, end: 20110311

REACTIONS (4)
  - Precursor T-lymphoblastic lymphoma/leukaemia [Fatal]
  - Neutrophil count decreased [Not Recovered/Not Resolved]
  - Pneumonia [Fatal]
  - Malignant neoplasm progression [Fatal]

NARRATIVE: CASE EVENT DATE: 20110316
